FAERS Safety Report 7828143-0 (Version None)
Quarter: 2011Q4

REPORT INFORMATION
  Report Type: 
  Country: None (occurrence: None)
  Receive Date: 20111020
  Receipt Date: 20111013
  Transmission Date: 20120403
  Serious: Yes (Death, Hospitalization, Other)
  Sender: FDA-Public Use
  Company Number: US-ALEXION-A201000853

PATIENT
  Sex: Female

DRUGS (3)
  1. FOLIC ACID [Concomitant]
  2. SOLIRIS [Suspect]
     Indication: PAROXYSMAL NOCTURNAL HAEMOGLOBINURIA
     Dosage: UNK
     Route: 042
     Dates: start: 20080201
  3. PREDNISONE [Concomitant]

REACTIONS (7)
  - ATRIAL FIBRILLATION [None]
  - ACUTE RESPIRATORY DISTRESS SYNDROME [None]
  - BLOOD PRESSURE DECREASED [None]
  - SEPSIS PASTEURELLA [None]
  - ERYTHEMA [None]
  - JAUNDICE [None]
  - PAIN [None]
